FAERS Safety Report 15781965 (Version 1)
Quarter: 2019Q1

REPORT INFORMATION
  Report Type: Spontaneous
  Country: US (occurrence: US)
  Receive Date: 20190102
  Receipt Date: 20190102
  Transmission Date: 20190417
  Serious: Yes (Other)
  Sender: FDA-Public Use
  Company Number: US-JNJFOC-20181234143

PATIENT
  Age: 80 Year
  Sex: Female

DRUGS (2)
  1. LEVAQUIN [Suspect]
     Active Substance: LEVOFLOXACIN
     Indication: PRODUCT USED FOR UNKNOWN INDICATION
     Route: 048
     Dates: start: 20181128, end: 20181204
  2. LEVAQUIN [Suspect]
     Active Substance: LEVOFLOXACIN
     Indication: PRODUCT USED FOR UNKNOWN INDICATION
     Route: 048

REACTIONS (7)
  - Pain [Not Recovered/Not Resolved]
  - Malaise [Unknown]
  - Paraesthesia [Not Recovered/Not Resolved]
  - Polymyalgia rheumatica [Unknown]
  - Muscular weakness [Not Recovered/Not Resolved]
  - Tremor [Not Recovered/Not Resolved]
  - Dyspnoea [Not Recovered/Not Resolved]

NARRATIVE: CASE EVENT DATE: 2018
